FAERS Safety Report 10615526 (Version 1)
Quarter: 2014Q4

REPORT INFORMATION
  Report Type: Spontaneous
  Country: US (occurrence: None)
  Receive Date: 20141125
  Receipt Date: 20141125
  Transmission Date: 20150529
  Serious: Yes (Hospitalization)
  Sender: FDA-Public Use
  Company Number: None

PATIENT
  Age: 61 Year
  Sex: Male
  Weight: 123 kg

DRUGS (1)
  1. INTRON A [Suspect]
     Active Substance: INTERFERON ALFA-2B
     Dosage: 245 MILLION IU
     Dates: end: 20130809

REACTIONS (2)
  - Blood creatine phosphokinase increased [None]
  - Bradycardia [None]

NARRATIVE: CASE EVENT DATE: 20130812
